FAERS Safety Report 21493362 (Version 1)
Quarter: 2022Q4

REPORT INFORMATION
  Report Type: Spontaneous
  Country: NO (occurrence: NO)
  Receive Date: 20221021
  Receipt Date: 20221021
  Transmission Date: 20230113
  Serious: Yes (Other)
  Sender: FDA-Public Use
  Company Number: None

PATIENT
  Age: 59 Year
  Sex: Female
  Weight: 58 kg

DRUGS (1)
  1. TETRACYCLINE [Suspect]
     Active Substance: TETRACYCLINE
     Indication: Sinusitis
     Dosage: FORM STRENGTH : 250 MG , THERAPY END DATE : NASK
     Dates: start: 1985

REACTIONS (2)
  - Erythema multiforme [Recovered/Resolved]
  - Arthritis [Unknown]
